FAERS Safety Report 17675901 (Version 2)
Quarter: 2020Q2

REPORT INFORMATION
  Report Type: Report from Study
  Country: US (occurrence: US)
  Receive Date: 20200416
  Receipt Date: 20200420
  Transmission Date: 20200714
  Serious: No
  Sender: FDA-Public Use
  Company Number: NVSC2017US006228

PATIENT
  Sex: Female

DRUGS (1)
  1. PENICILLIN G SODIUM. [Suspect]
     Active Substance: PENICILLIN G SODIUM
     Indication: PRODUCT USED FOR UNKNOWN INDICATION
     Dosage: UNK OT
     Route: 065

REACTIONS (1)
  - Hypersensitivity [Unknown]
